FAERS Safety Report 8145069-6 (Version None)
Quarter: 2012Q1

REPORT INFORMATION
  Report Type: 
  Country: None (occurrence: None)
  Receive Date: 20120217
  Receipt Date: 20120207
  Transmission Date: 20120608
  Serious: Yes (Other)
  Sender: FDA-Public Use
  Company Number: PHEH2012US003450

PATIENT
  Sex: Female

DRUGS (4)
  1. GLEEVEC [Suspect]
     Indication: LEUKAEMIA
     Dosage: 300 MG, ONCE DAILY
     Route: 048
     Dates: start: 20111201
  2. IRON [Concomitant]
     Route: 042
  3. CELEXA [Concomitant]
  4. METAMUCIL-2 [Concomitant]

REACTIONS (5)
  - HAEMORRHOIDS [None]
  - DIARRHOEA [None]
  - FATIGUE [None]
  - OEDEMA [None]
  - RECTAL HAEMORRHAGE [None]
